FAERS Safety Report 8545254-5 (Version None)
Quarter: 2012Q3

REPORT INFORMATION
  Report Type: 
  Country: None (occurrence: None)
  Receive Date: 20120727
  Receipt Date: 20120719
  Transmission Date: 20120928
  Serious: Yes (Death, Hospitalization)
  Sender: FDA-Public Use
  Company Number: VN-BAXTER-2012BAX012014

PATIENT
  Age: 55 Year
  Sex: Female

DRUGS (3)
  1. DIANEAL [Suspect]
     Dosage: 2 BAGS
     Route: 033
     Dates: start: 20101210
  2. DIANEAL [Suspect]
     Dosage: 2 BAGS
     Route: 033
     Dates: start: 20101210
  3. DIANEAL [Suspect]
     Dates: start: 20101210

REACTIONS (5)
  - MALNUTRITION [None]
  - RESPIRATORY FAILURE [None]
  - DIABETES MELLITUS [None]
  - DIABETIC COMPLICATION [None]
  - HYPOTENSION [None]
